FAERS Safety Report 6711168-6 (Version None)
Quarter: 2010Q2

REPORT INFORMATION
  Report Type: 
  Country: None (occurrence: None)
  Receive Date: 20100504
  Receipt Date: 20100504
  Transmission Date: 20101027
  Serious: Yes (Other)
  Sender: FDA-Public Use
  Company Number: None

PATIENT
  Age: 4 Year
  Sex: Female
  Weight: 17.6903 kg

DRUGS (1)
  1. PEDIALAX FIBER GUMMIES FOR 2-11 YEAR OLDS FLEET [Suspect]
     Indication: CONSTIPATION
     Dosage: 1 FIBER GUMMY THREE TIMES A DAY PO  OVER 1 1/2 YEARS
     Route: 048
     Dates: start: 20090101, end: 20100503

REACTIONS (4)
  - DYSGEUSIA [None]
  - PRODUCT CONTAMINATION [None]
  - PRODUCT QUALITY ISSUE [None]
  - VOMITING [None]
